FAERS Safety Report 19956406 (Version 1)
Quarter: 2021Q4

REPORT INFORMATION
  Report Type: Spontaneous
  Country: US (occurrence: US)
  Receive Date: 20211014
  Receipt Date: 20211014
  Transmission Date: 20220303
  Serious: Yes (Hospitalization, Disabling)
  Sender: FDA-Public Use
  Company Number: 2021A773378

PATIENT
  Age: 37 Year
  Sex: Male

DRUGS (5)
  1. SEROQUEL [Suspect]
     Active Substance: QUETIAPINE FUMARATE
     Indication: Schizophrenia
     Dosage: UNKNOWN
     Route: 048
     Dates: start: 20210908
  2. CAPLYTA [Suspect]
     Active Substance: LUMATEPERONE
     Dosage: 42 MG, EVERY 48 HOURS
     Route: 065
     Dates: start: 20210828, end: 20210830
  3. ABILIFY [Concomitant]
     Active Substance: ARIPIPRAZOLE
  4. CYMBALTA [Concomitant]
     Active Substance: DULOXETINE HYDROCHLORIDE
  5. METFORMIN HYDROCHLORIDE [Concomitant]
     Active Substance: METFORMIN HYDROCHLORIDE
     Dates: start: 20210629

REACTIONS (13)
  - Abnormal behaviour [Not Recovered/Not Resolved]
  - Confusional state [Unknown]
  - Impaired self-care [Not Recovered/Not Resolved]
  - Soliloquy [Not Recovered/Not Resolved]
  - Nervousness [Not Recovered/Not Resolved]
  - Tobacco abuse [Unknown]
  - Asocial behaviour [Not Recovered/Not Resolved]
  - Memory impairment [Not Recovered/Not Resolved]
  - Dyskinesia [Unknown]
  - Restlessness [Not Recovered/Not Resolved]
  - Hyperhidrosis [Recovering/Resolving]
  - Tic [Unknown]
  - Intentional underdose [Unknown]
